FAERS Safety Report 12204650 (Version 1)
Quarter: 2016Q1

REPORT INFORMATION
  Report Type: Spontaneous
  Country: CH (occurrence: CH)
  Receive Date: 20160323
  Receipt Date: 20160323
  Transmission Date: 20160526
  Serious: Yes (Other)
  Sender: FDA-Public Use
  Company Number: CH-ASTRAZENECA-2016SE30092

PATIENT

DRUGS (2)
  1. ATORVASTATIN [Suspect]
     Active Substance: ATORVASTATIN
     Route: 065
     Dates: start: 201601, end: 20160311
  2. BRILIQUE [Suspect]
     Active Substance: TICAGRELOR
     Indication: DRESSLER^S SYNDROME
     Route: 048
     Dates: start: 201601

REACTIONS (2)
  - Hepatitis [Unknown]
  - Pruritus [Unknown]
